FAERS Safety Report 25031875 (Version 1)
Quarter: 2025Q1

REPORT INFORMATION
  Report Type: Spontaneous
  Country: IT (occurrence: IT)
  Receive Date: 20250303
  Receipt Date: 20250303
  Transmission Date: 20250409
  Serious: Yes (Other)
  Sender: MYLAN
  Company Number: IT-MYLANLABS-2025M1016731

PATIENT
  Age: 19 Year

DRUGS (8)
  1. METFORMIN [Suspect]
     Active Substance: METFORMIN HYDROCHLORIDE
     Indication: Diabetes mellitus
  2. METFORMIN [Suspect]
     Active Substance: METFORMIN HYDROCHLORIDE
     Route: 065
  3. METFORMIN [Suspect]
     Active Substance: METFORMIN HYDROCHLORIDE
     Route: 065
  4. METFORMIN [Suspect]
     Active Substance: METFORMIN HYDROCHLORIDE
  5. INSULIN NOS [Suspect]
     Active Substance: INSULIN NOS
     Indication: Diabetes mellitus
  6. INSULIN NOS [Suspect]
     Active Substance: INSULIN NOS
     Route: 065
  7. INSULIN NOS [Suspect]
     Active Substance: INSULIN NOS
     Route: 065
  8. INSULIN NOS [Suspect]
     Active Substance: INSULIN NOS

REACTIONS (1)
  - Drug ineffective [Unknown]
